FAERS Safety Report 8394273-0 (Version None)
Quarter: 2012Q1

REPORT INFORMATION
  Report Type: 
  Country: None (occurrence: None)
  Receive Date: 20120323
  Receipt Date: 20110503
  Transmission Date: 20120608
  Serious: Yes (Hospitalization)
  Sender: FDA-Public Use
  Company Number: 163-21880-11050703

PATIENT
  Age: 61 Year
  Sex: Male

DRUGS (3)
  1. COUMADIN (WARFARIN SODIUM)(UNKNOWN) V [Concomitant]
  2. REVLIMID [Suspect]
     Indication: MULTIPLE MYELOMA
     Dosage: 15 MG,  X 21 DAYS, PO
     Route: 048
     Dates: start: 20110301
  3. DECADRON [Concomitant]

REACTIONS (1)
  - CARDIAC FAILURE CONGESTIVE [None]
